APPROVED DRUG PRODUCT: ALEVE-D SINUS & COLD
Active Ingredient: NAPROXEN SODIUM; PSEUDOEPHEDRINE HYDROCHLORIDE
Strength: 220MG;120MG **Federal Register determination that product was not discontinued or withdrawn for safety or effectiveness reasons**
Dosage Form/Route: TABLET, EXTENDED RELEASE;ORAL
Application: N021076 | Product #001
Applicant: BAYER HEALTHCARE LLC
Approved: Nov 29, 1999 | RLD: Yes | RS: No | Type: DISCN